FAERS Safety Report 18415223 (Version 3)
Quarter: 2020Q4

REPORT INFORMATION
  Report Type: Spontaneous
  Country: US (occurrence: US)
  Receive Date: 20201022
  Receipt Date: 20201118
  Transmission Date: 20210114
  Serious: Yes (Other)
  Sender: FDA-Public Use
  Company Number: US-AMGEN-USASP2020168888

PATIENT
  Age: 47 Year
  Sex: Female

DRUGS (8)
  1. OXYBUTYNIN. [Concomitant]
     Active Substance: OXYBUTYNIN CHLORIDE
     Dosage: UNK
  2. VANIQA [EFLORNITHINE HYDROCHLORIDE] [Concomitant]
     Dosage: UNK
  3. TOPIRAMATE. [Concomitant]
     Active Substance: TOPIRAMATE
     Dosage: UNK
  4. LANSOPRAZOLE. [Concomitant]
     Active Substance: LANSOPRAZOLE
     Dosage: UNK
  5. AMLODIPINE [Concomitant]
     Active Substance: AMLODIPINE BESYLATE
     Dosage: UNK
  6. DICLOFENAC [Concomitant]
     Active Substance: DICLOFENAC
     Dosage: UNK
  7. OTEZLA [Suspect]
     Active Substance: APREMILAST
     Indication: PSORIATIC ARTHROPATHY
     Dosage: 30 MILLIGRAM, BID (Q 12 HOUR)
     Route: 048
     Dates: start: 20200920, end: 2020
  8. SAXENDA [Concomitant]
     Active Substance: LIRAGLUTIDE
     Dosage: UNK

REACTIONS (6)
  - Psoriatic arthropathy [Not Recovered/Not Resolved]
  - Abdominal discomfort [Not Recovered/Not Resolved]
  - Cough [Not Recovered/Not Resolved]
  - Dry skin [Not Recovered/Not Resolved]
  - Oropharyngeal pain [Not Recovered/Not Resolved]
  - Alopecia [Not Recovered/Not Resolved]

NARRATIVE: CASE EVENT DATE: 2020
